FAERS Safety Report 13675130 (Version 1)
Quarter: 2017Q2

REPORT INFORMATION
  Report Type: Spontaneous
  Country: GB (occurrence: GB)
  Receive Date: 20170621
  Receipt Date: 20170621
  Transmission Date: 20170830
  Serious: Yes (Disabling)
  Sender: FDA-Public Use
  Company Number: GB-UCBSA-2017024318

PATIENT
  Age: 5 Year

DRUGS (1)
  1. KEPPRA [Suspect]
     Active Substance: LEVETIRACETAM
     Indication: PRODUCT USED FOR UNKNOWN INDICATION
     Dosage: UNK

REACTIONS (4)
  - Dysphagia [Unknown]
  - Vomiting [Unknown]
  - Disability [Unknown]
  - Circumstance or information capable of leading to medication error [Unknown]
